FAERS Safety Report 7094061-1 (Version None)
Quarter: 2010Q4

REPORT INFORMATION
  Report Type: 
  Country: None (occurrence: None)
  Receive Date: 20101110
  Receipt Date: 20101028
  Transmission Date: 20110411
  Serious: Yes (Life-Threatening, Hospitalization)
  Sender: FDA-Public Use
  Company Number: DE-ELI_LILLY_AND_COMPANY-CH201010007204

PATIENT
  Sex: Male

DRUGS (2)
  1. CYMBALTA [Suspect]
     Route: 048
  2. SEROQUEL [Concomitant]

REACTIONS (3)
  - SEROTONIN SYNDROME [None]
  - SUICIDE ATTEMPT [None]
  - UNRESPONSIVE TO STIMULI [None]
